FAERS Safety Report 6202924-1 (Version None)
Quarter: 2009Q2

REPORT INFORMATION
  Report Type: 
  Country: None (occurrence: None)
  Receive Date: 20090520
  Receipt Date: 20090506
  Transmission Date: 20091009
  Serious: Yes (Death)
  Sender: FDA-Public Use
  Company Number: 2009S1008531

PATIENT
  Age: 24 Year
  Sex: Male

DRUGS (9)
  1. CYSTAGON [Suspect]
     Indication: CYSTINOSIS
     Dosage: DAILYP; ORAL, 350 MG; 4 TIMS A DAY; ORAL
     Route: 048
     Dates: end: 20090204
  2. CYSTAGON [Suspect]
     Indication: CYSTINOSIS
     Dosage: DAILYP; ORAL, 350 MG; 4 TIMS A DAY; ORAL
     Route: 048
     Dates: start: 19970101
  3. CYCLOSPORINE [Concomitant]
  4. MYCOPHENOLATE MOFETIL [Concomitant]
  5. METHYLPREDNISOLONE [Concomitant]
  6. ATENOLOL [Concomitant]
  7. NIFEDIPINE [Concomitant]
  8. LEVOTHYROXINE [Concomitant]
  9. GLIBENCLAMIDE [Concomitant]

REACTIONS (2)
  - NON-HODGKIN'S LYMPHOMA [None]
  - TRACHEOSTOMY [None]
